FAERS Safety Report 6958524-9 (Version None)
Quarter: 2010Q3

REPORT INFORMATION
  Report Type: 
  Country: None (occurrence: None)
  Receive Date: 20100830
  Receipt Date: 20100830
  Transmission Date: 20110219
  Serious: Yes (Other)
  Sender: FDA-Public Use
  Company Number: None

PATIENT
  Sex: Female
  Weight: 58.9676 kg

DRUGS (4)
  1. CELEXA [Suspect]
     Indication: SLEEP DISORDER
     Dosage: 5-10MG DAILY MOUTH JAN-FEB?
     Route: 048
  2. MAGNESIUM AND OXYGEN 3 SUPPLEMENT [Concomitant]
  3. VITAMIN B COMPLEX CAP [Concomitant]
  4. DEPLIN [Concomitant]

REACTIONS (4)
  - DECREASED ACTIVITY [None]
  - FEELING HOT [None]
  - LOSS OF CONSCIOUSNESS [None]
  - SHOCK [None]
